FAERS Safety Report 25760326 (Version 1)
Quarter: 2025Q3

REPORT INFORMATION
  Report Type: Spontaneous
  Country: US (occurrence: None)
  Receive Date: 20250903
  Receipt Date: 20250903
  Transmission Date: 20251021
  Serious: Yes (Hospitalization)
  Sender: FDA-CTU
  Company Number: None

PATIENT
  Sex: Male

DRUGS (7)
  1. RINVOQ [Suspect]
     Active Substance: UPADACITINIB
     Indication: Product used for unknown indication
     Dosage: FREQUENCY : DAILY;?
     Route: 048
     Dates: start: 20250712
  2. ASPIRIN [Concomitant]
     Active Substance: ASPIRIN
  3. HUMIRA [Concomitant]
     Active Substance: ADALIMUMAB
  4. METOPROL TAR TAB [Concomitant]
  5. ROSUVASTATIN [Concomitant]
     Active Substance: ROSUVASTATIN
  6. TICAGRELOR TAB [Concomitant]
  7. VITAMIN B12 TAB [Concomitant]

REACTIONS (1)
  - Myocardial infarction [None]
